FAERS Safety Report 9168018 (Version 3)
Quarter: 2013Q2

REPORT INFORMATION
  Report Type: Spontaneous
  Country: JP (occurrence: JP)
  Receive Date: 20130318
  Receipt Date: 20130429
  Transmission Date: 20140414
  Serious: Yes (Other)
  Sender: FDA-Public Use
  Company Number: JP-ASTELLAS-2013JP003848

PATIENT
  Age: 6 Year
  Sex: Male
  Weight: 20 kg

DRUGS (17)
  1. PROGRAF [Suspect]
     Indication: PROPHYLAXIS AGAINST GRAFT VERSUS HOST DISEASE
     Dosage: 0.4 MG, CONTINUOUS
     Route: 041
     Dates: start: 20060929, end: 20060930
  2. PROGRAF [Suspect]
     Indication: GRAFT VERSUS HOST DISEASE
  3. PROGRAF [Suspect]
     Indication: ACUTE GRAFT VERSUS HOST DISEASE
     Dosage: 0.2 MG, BID
     Route: 048
     Dates: start: 20061025, end: 20070308
  4. PROGRAF [Suspect]
     Indication: CHRONIC GRAFT VERSUS HOST DISEASE
     Dosage: UNK
     Route: 065
     Dates: start: 200709
  5. SANDIMMUN [Suspect]
     Indication: PROPHYLAXIS
     Dosage: UNK
     Route: 041
     Dates: start: 20060914, end: 20060926
  6. SANDIMMUN [Suspect]
     Indication: PROPHYLAXIS AGAINST GRAFT VERSUS HOST DISEASE
     Dosage: 30 MG, BID
     Route: 041
     Dates: start: 20060927, end: 20060929
  7. METHYLPREDNISOLONE [Concomitant]
     Indication: PROPHYLAXIS AGAINST GRAFT VERSUS HOST DISEASE
     Route: 042
  8. GASTER [Concomitant]
     Indication: PROPHYLAXIS
     Dosage: UNK
     Route: 041
     Dates: start: 20060911, end: 20061030
  9. ACICLOVIR [Concomitant]
     Indication: PROPHYLAXIS
     Dosage: UNK
     Route: 041
     Dates: start: 20060908, end: 20061016
  10. FUNGUARD [Concomitant]
     Indication: INFECTION PROPHYLAXIS
     Dosage: UNK
     Route: 041
     Dates: start: 20060908, end: 20061017
  11. FULCALIQ [Concomitant]
     Indication: PROPHYLAXIS
     Dosage: UNK
     Route: 041
     Dates: start: 20060916, end: 20061003
  12. MEDLENIK [Concomitant]
     Indication: PROPHYLAXIS
     Dosage: UNK
     Route: 041
     Dates: start: 20060916, end: 20061003
  13. NOVO HEPARIN [Concomitant]
     Indication: PROPHYLAXIS
     Dosage: UNK
     Route: 041
     Dates: start: 20060906, end: 20061018
  14. HUMULIN R [Concomitant]
     Indication: PROPHYLAXIS
     Dosage: UNK
     Route: 041
     Dates: start: 20060928, end: 20060929
  15. ATARAX-P                           /00058402/ [Concomitant]
     Indication: URTICARIA
     Dosage: UNK
     Route: 041
     Dates: start: 20060927, end: 20060928
  16. ATARAX-P                           /00058402/ [Concomitant]
     Dosage: 25 MG, BID
     Route: 041
     Dates: start: 20060929, end: 20060929
  17. ATARAX-P                           /00058402/ [Concomitant]
     Dosage: UNK
     Route: 041
     Dates: start: 20060930, end: 20060930

REACTIONS (3)
  - Drug ineffective [Recovering/Resolving]
  - Chronic graft versus host disease [Recovering/Resolving]
  - Urticaria [Recovering/Resolving]
